FAERS Safety Report 7554803-5 (Version None)
Quarter: 2011Q2

REPORT INFORMATION
  Report Type: 
  Country: None (occurrence: None)
  Receive Date: 20110614
  Receipt Date: 20110614
  Transmission Date: 20111010
  Serious: No
  Sender: FDA-Public Use
  Company Number: None

PATIENT

DRUGS (1)
  1. MIDAZOLAM HCL [Suspect]
     Indication: ENDOSCOPY

REACTIONS (1)
  - DRUG EFFECT DECREASED [None]
